FAERS Safety Report 19824411 (Version 1)
Quarter: 2021Q3

REPORT INFORMATION
  Report Type: Spontaneous
  Country: US (occurrence: US)
  Receive Date: 20210910
  Receipt Date: 20210910
  Transmission Date: 20211014
  Serious: Yes (Hospitalization)
  Sender: FDA-Public Use
  Company Number: None

PATIENT
  Age: 73 Year
  Sex: Female

DRUGS (15)
  1. CRAN CONC [Concomitant]
  2. DOFETILIDE. [Concomitant]
     Active Substance: DOFETILIDE
  3. DULOXETINE. [Concomitant]
     Active Substance: DULOXETINE
  4. IBUPROFEN. [Concomitant]
     Active Substance: IBUPROFEN
  5. UBRELVY [Concomitant]
     Active Substance: UBROGEPANT
  6. CALCIUM CHW GUMMIES [Concomitant]
  7. DOFETILIDE. [Concomitant]
     Active Substance: DOFETILIDE
  8. LEVOTHYROXIN [Concomitant]
     Active Substance: LEVOTHYROXINE
  9. PROTONIX [Concomitant]
     Active Substance: PANTOPRAZOLE SODIUM
  10. DILTIAZEM. [Concomitant]
     Active Substance: DILTIAZEM
  11. LETAIRIS [Concomitant]
     Active Substance: AMBRISENTAN
  12. AMBRISENTAN [Concomitant]
     Active Substance: AMBRISENTAN
  13. ELIQUIS [Concomitant]
     Active Substance: APIXABAN
  14. PROAIR HFA [Concomitant]
     Active Substance: ALBUTEROL SULFATE
  15. AMBRISENTAN 10 MG TAB [Suspect]
     Active Substance: AMBRISENTAN
     Indication: PULMONARY ARTERIAL HYPERTENSION
     Route: 048
     Dates: start: 20210130

REACTIONS (1)
  - Pneumonia [None]

NARRATIVE: CASE EVENT DATE: 20210909
